FAERS Safety Report 10236230 (Version 1)
Quarter: 2014Q1

REPORT INFORMATION
  Report Type: Spontaneous
  Country: US (occurrence: None)
  Receive Date: 20140306
  Receipt Date: 20140306
  Transmission Date: 20141002
  Serious: Yes (Other)
  Sender: FDA-Public Use
  Company Number: 163-21880-13030597

PATIENT
  Age: 81 Year
  Sex: Male
  Weight: 90.72 kg

DRUGS (11)
  1. REVLIMID (LENALIDOMIDE) (10 MILLIGRAM, CAPSULES) [Suspect]
     Indication: PLASMA CELL MYELOMA
     Dosage: 10 MG, 21 IN 21 D, PO
     Route: 048
     Dates: start: 20130112
  2. DILTIAZEM 24 HR CD (DILTIAZEM HYDROCHLORIDE) [Concomitant]
  3. FISH OIL (FISH OIL) [Concomitant]
  4. GLIPIZIDE XL (GLIPIZIDE) [Concomitant]
  5. GLUCOTROL XL (GLIPIZIDE) [Concomitant]
  6. LOSARTAN POTASSIUM (LOSARTA POTASSIUM) [Concomitant]
  7. MUTIVITAL (MULTIVITAL) [Concomitant]
  8. PRADAXA (DABIGATRAN ETEXILATE MESILATE) [Concomitant]
  9. SIMVASTATIN (SIMVASTATIN) [Concomitant]
  10. VITAMIN B-12 (CYANOCOBALAMIN) [Concomitant]
  11. VITAMIN D (ERGOCALCIFEROL) [Concomitant]

REACTIONS (9)
  - Oral disorder [None]
  - Lower respiratory tract infection [None]
  - Asthenia [None]
  - Dysphonia [None]
  - Stomatitis [None]
  - Fatigue [None]
  - Anaemia [None]
  - Oedema peripheral [None]
  - Subcutaneous haematoma [None]
